FAERS Safety Report 5201167-8 (Version None)
Quarter: 2007Q1

REPORT INFORMATION
  Report Type: 
  Country: None (occurrence: None)
  Receive Date: 20070108
  Receipt Date: 20061228
  Transmission Date: 20070707
  Serious: Yes (Other)
  Sender: FDA-Public Use
  Company Number: 2006AP06205

PATIENT
  Age: 8576 Day
  Sex: Female

DRUGS (25)
  1. SEROQUEL [Suspect]
     Indication: DEPRESSION
     Route: 048
     Dates: start: 20061117, end: 20061117
  2. SEROQUEL [Suspect]
     Indication: SCHIZOPHRENIA
     Route: 048
     Dates: start: 20061117, end: 20061117
  3. SEROQUEL [Suspect]
     Route: 048
     Dates: start: 20061118, end: 20061121
  4. SEROQUEL [Suspect]
     Route: 048
     Dates: start: 20061118, end: 20061121
  5. SEROQUEL [Suspect]
     Route: 048
     Dates: start: 20061122, end: 20061130
  6. SEROQUEL [Suspect]
     Route: 048
     Dates: start: 20061122, end: 20061130
  7. SEROQUEL [Suspect]
     Route: 048
     Dates: start: 20061201, end: 20061206
  8. SEROQUEL [Suspect]
     Route: 048
     Dates: start: 20061201, end: 20061206
  9. HIRNAMIN [Suspect]
     Indication: DEPRESSION
     Route: 048
     Dates: start: 20061117, end: 20061211
  10. HIRNAMIN [Suspect]
     Indication: SCHIZOPHRENIA
     Route: 048
     Dates: start: 20061117, end: 20061211
  11. HIRNAMIN [Suspect]
     Indication: INSOMNIA
     Route: 048
     Dates: start: 20061117, end: 20061211
  12. HIRNAMIN [Suspect]
     Route: 048
     Dates: start: 20061201, end: 20061207
  13. HIRNAMIN [Suspect]
     Route: 048
     Dates: start: 20061201, end: 20061207
  14. HIRNAMIN [Suspect]
     Route: 048
     Dates: start: 20061201, end: 20061207
  15. DEPAS [Concomitant]
     Indication: DEPRESSION
     Route: 048
     Dates: start: 20061114
  16. PAXIL [Concomitant]
     Indication: DEPRESSION
     Route: 048
     Dates: start: 20061114, end: 20061205
  17. PAXIL [Concomitant]
     Route: 048
     Dates: start: 20061206, end: 20061211
  18. MEILAX [Concomitant]
     Indication: DEPRESSION
     Route: 048
     Dates: start: 20061114
  19. HALOPERIDOL [Concomitant]
     Indication: SCHIZOPHRENIA
     Route: 041
     Dates: start: 20061122, end: 20061124
  20. HALOPERIDOL [Concomitant]
     Route: 041
     Dates: start: 20061125, end: 20061127
  21. AKINETON [Concomitant]
     Indication: SCHIZOPHRENIA
     Route: 041
     Dates: start: 20061122, end: 20061124
  22. AKINETON [Concomitant]
     Route: 041
     Dates: start: 20061125, end: 20061127
  23. RISPERDAL [Concomitant]
     Indication: SCHIZOPHRENIA
     Route: 048
     Dates: start: 20061127, end: 20061211
  24. VEGETAMIN A [Concomitant]
     Indication: INSOMNIA
     Route: 048
     Dates: start: 20061206
  25. LENDORMIN [Concomitant]
     Indication: INSOMNIA
     Route: 048
     Dates: start: 20061114, end: 20061116

REACTIONS (4)
  - ALANINE AMINOTRANSFERASE INCREASED [None]
  - ASPARTATE AMINOTRANSFERASE INCREASED [None]
  - GAMMA-GLUTAMYLTRANSFERASE INCREASED [None]
  - THROMBOCYTOPENIA [None]
